FAERS Safety Report 7038510-3 (Version None)
Quarter: 2010Q4

REPORT INFORMATION
  Report Type: 
  Country: None (occurrence: None)
  Receive Date: 20101011
  Receipt Date: 20100512
  Transmission Date: 20110411
  Serious: No
  Sender: FDA-Public Use
  Company Number: US-PFIZER INC-2010060683

PATIENT
  Sex: Male

DRUGS (3)
  1. NEURONTIN [Suspect]
     Dosage: 300 MG, UNK
     Route: 048
  2. OXYCODONE [Concomitant]
     Indication: PAIN
     Dosage: UNK
  3. VIAGRA [Concomitant]
     Dosage: UNK
     Route: 048

REACTIONS (1)
  - PAIN [None]
